FAERS Safety Report 13959993 (Version 1)
Quarter: 2017Q3

REPORT INFORMATION
  Report Type: Spontaneous
  Country: US (occurrence: US)
  Receive Date: 20170912
  Receipt Date: 20170912
  Transmission Date: 20171128
  Serious: No
  Sender: FDA-Public Use
  Company Number: US-BAYER-2017-167497

PATIENT
  Age: 46 Year
  Sex: Female

DRUGS (1)
  1. BETASERON [Suspect]
     Active Substance: INTERFERON BETA-1B
     Indication: MULTIPLE SCLEROSIS
     Dosage: 0.3 MG, BIW
     Route: 058
     Dates: start: 2012

REACTIONS (5)
  - Depression [None]
  - Fatigue [None]
  - Headache [None]
  - Injection site erythema [None]
  - Feeling cold [None]

NARRATIVE: CASE EVENT DATE: 20170829
